FAERS Safety Report 24239132 (Version 2)
Quarter: 2025Q2

REPORT INFORMATION
  Report Type: Spontaneous
  Country: US (occurrence: None)
  Receive Date: 20240822
  Receipt Date: 20250605
  Transmission Date: 20250716
  Serious: Yes (Hospitalization)
  Sender: INCYTE
  Company Number: US-INCYTE CORPORATION-2024IN008721

PATIENT

DRUGS (2)
  1. OPZELURA [Suspect]
     Active Substance: RUXOLITINIB PHOSPHATE
     Indication: Vitiligo
     Dosage: 60 GRAM, QD (APPLY IT TO WHOLE BODY)
  2. TRIAMCINOLONE ACETONIDE [Concomitant]
     Active Substance: TRIAMCINOLONE ACETONIDE
     Indication: Vitiligo

REACTIONS (2)
  - COVID-19 [Unknown]
  - Product physical consistency issue [Unknown]
